FAERS Safety Report 5909445-1 (Version None)
Quarter: 2008Q4

REPORT INFORMATION
  Report Type: 
  Country: None (occurrence: None)
  Receive Date: 20081001
  Receipt Date: 20080922
  Transmission Date: 20090506
  Serious: Yes (Hospitalization)
  Sender: FDA-Public Use
  Company Number: GXKR2008PL09083

PATIENT
  Age: 22 Month
  Sex: Female

DRUGS (6)
  1. PARACETAMOL (NGX) (PARACETAMOL) UNKNOWN, 120/5MG/ML [Suspect]
     Indication: PYREXIA
     Dosage: 10 MG/KG, TID (3X5 ML)
  2. PARACETAMOL (NGX) (PARACETAMOL) UNKNOWN, 120/5MG/ML [Suspect]
     Indication: RESPIRATORY TRACT INFECTION
     Dosage: 10 MG/KG, TID (3X5 ML)
  3. IBUFEN (IBUPROFEN) UNKNOWN, 100/5MG/ML [Suspect]
     Indication: PYREXIA
     Dosage: 120 MG / 5ML, 2 DOSES
  4. IBUFEN (IBUPROFEN) UNKNOWN, 100/5MG/ML [Suspect]
     Indication: RESPIRATORY TRACT INFECTION
     Dosage: 120 MG / 5ML, 2 DOSES
  5. FLUID/ELECTROLYTE REPLACEMENT THERAPY (FLUID/ELECTROLYTE REPLACEMENT T [Concomitant]
  6. ANTIBACTERIALS FOR SYSTEMIC USE (NO INGREDIENTS/SUBSTANCES) [Concomitant]

REACTIONS (3)
  - FOOD AVERSION [None]
  - GASTRITIS HAEMORRHAGIC [None]
  - HIATUS HERNIA [None]
